FAERS Safety Report 9541349 (Version 3)
Quarter: 2013Q4

REPORT INFORMATION
  Report Type: Spontaneous
  Country: TH (occurrence: TH)
  Receive Date: 20130923
  Receipt Date: 20131204
  Transmission Date: 20140711
  Serious: Yes (Hospitalization, Other)
  Sender: FDA-Public Use
  Company Number: TH-009507513-1309THA006966

PATIENT
  Age: 19 Year
  Sex: Female

DRUGS (1)
  1. ETOPLAN [Suspect]
     Indication: CONTRACEPTION
     Dosage: UNK
     Route: 059
     Dates: start: 20120514

REACTIONS (4)
  - Abortion induced [Recovered/Resolved]
  - Unintended pregnancy [Recovered/Resolved]
  - Evacuation of retained products of conception [Recovered/Resolved]
  - Medical device complication [Not Recovered/Not Resolved]
